FAERS Safety Report 7295401-0 (Version None)
Quarter: 2011Q1

REPORT INFORMATION
  Report Type: 
  Country: None (occurrence: None)
  Receive Date: 20110216
  Receipt Date: 20110114
  Transmission Date: 20110831
  Serious: No
  Sender: FDA-Public Use
  Company Number: US-ABBOTT-11P-163-0697623-00

PATIENT
  Sex: Male
  Weight: 136.2 kg

DRUGS (4)
  1. SIMCOR [Suspect]
     Indication: BLOOD TRIGLYCERIDES INCREASED
  2. ASPIRIN [Concomitant]
     Indication: PRODUCT USED FOR UNKNOWN INDICATION
  3. SIMCOR [Suspect]
     Indication: HYPERLIPIDAEMIA
     Dosage: 500/20MG AT NIGHT
     Dates: start: 20101227
  4. ALLOPURINOL [Concomitant]
     Indication: GOUT

REACTIONS (2)
  - PAIN IN EXTREMITY [None]
  - GASTROINTESTINAL PAIN [None]
